FAERS Safety Report 4886790-2 (Version None)
Quarter: 2006Q1

REPORT INFORMATION
  Report Type: 
  Country: None (occurrence: None)
  Receive Date: 20060119
  Receipt Date: 20060110
  Transmission Date: 20060701
  Serious: Yes (Hospitalization)
  Sender: FDA-Public Use
  Company Number: 2006006462

PATIENT
  Age: 56 Year
  Sex: Male

DRUGS (1)
  1. ZIPRASIDONE HCL [Suspect]
     Indication: SCHIZOPHRENIA
     Dosage: 80 MG (80 MG, 1 IN 1 D); ORAL
     Route: 048
     Dates: start: 20040401

REACTIONS (2)
  - AGITATION [None]
  - LOWER RESPIRATORY TRACT INFLAMMATION [None]
